FAERS Safety Report 12998559 (Version 1)
Quarter: 2016Q4

REPORT INFORMATION
  Report Type: Spontaneous
  Country: SE (occurrence: SE)
  Receive Date: 20161205
  Receipt Date: 20161205
  Transmission Date: 20170207
  Serious: Yes (Other)
  Sender: FDA-Public Use
  Company Number: SE-009507513-1612SWE000987

PATIENT
  Age: 22 Year
  Sex: Male

DRUGS (3)
  1. ZINC (UNSPECIFIED) [Concomitant]
  2. PROPECIA [Suspect]
     Active Substance: FINASTERIDE
     Indication: ALOPECIA
     Dosage: TOOK A TOTAL OF TWO DOSES.
     Dates: start: 20161031, end: 20161103
  3. CHOLECALCIFEROL [Concomitant]
     Active Substance: CHOLECALCIFEROL

REACTIONS (10)
  - Impaired reasoning [Not Recovered/Not Resolved]
  - Lethargy [Not Recovered/Not Resolved]
  - Blunted affect [Not Recovered/Not Resolved]
  - Vision blurred [Not Recovered/Not Resolved]
  - Vitreous haze [Not Recovered/Not Resolved]
  - Dizziness [Not Recovered/Not Resolved]
  - Fine motor skill dysfunction [Not Recovered/Not Resolved]
  - Cognitive disorder [Not Recovered/Not Resolved]
  - Testicular pain [Not Recovered/Not Resolved]
  - Communication disorder [Not Recovered/Not Resolved]

NARRATIVE: CASE EVENT DATE: 20161102
